FAERS Safety Report 18165685 (Version 1)
Quarter: 2020Q3

REPORT INFORMATION
  Report Type: Spontaneous
  Country: US (occurrence: US)
  Receive Date: 20200818
  Receipt Date: 20200818
  Transmission Date: 20201103
  Serious: Yes (Death, Other)
  Sender: FDA-Public Use
  Company Number: US-PURDUE-USA-2020-0161535

PATIENT
  Sex: Female

DRUGS (1)
  1. OXYCONTIN [Suspect]
     Active Substance: OXYCODONE HYDROCHLORIDE
     Indication: PRODUCT USED FOR UNKNOWN INDICATION
     Dosage: UNK
     Route: 048

REACTIONS (10)
  - Aspiration [Unknown]
  - Vomiting [Unknown]
  - Pain [Unknown]
  - Lung disorder [Fatal]
  - Withdrawal syndrome [Unknown]
  - Nausea [Unknown]
  - Hallucination [Unknown]
  - Panic attack [Unknown]
  - Drug dependence [Unknown]
  - Ascites [Unknown]
